FAERS Safety Report 26052234 (Version 1)
Quarter: 2025Q4

REPORT INFORMATION
  Report Type: Spontaneous
  Country: US (occurrence: US)
  Receive Date: 20251117
  Receipt Date: 20251117
  Transmission Date: 20260118
  Serious: Yes (Death, Hospitalization, Other)
  Sender: JOHNSON AND JOHNSON
  Company Number: US-JNJFOC-20251154018

PATIENT
  Age: 60 Year
  Sex: Female
  Weight: 70.6 kg

DRUGS (1)
  1. CARVYKTI [Suspect]
     Active Substance: CILTACABTAGENE AUTOLEUCEL
     Indication: Plasma cell myeloma refractory
     Dosage: 1 KG; 1 X10 E8
     Route: 042
     Dates: start: 20241122, end: 20241122

REACTIONS (5)
  - Death [Fatal]
  - Neurotoxicity [Unknown]
  - Cytokine release syndrome [Unknown]
  - Choking [Unknown]
  - Fall [Unknown]

NARRATIVE: CASE EVENT DATE: 20241101
